FAERS Safety Report 15362705 (Version 2)
Quarter: 2019Q2

REPORT INFORMATION
  Report Type: Report from Study
  Country: US (occurrence: US)
  Receive Date: 20180907
  Receipt Date: 20190620
  Transmission Date: 20190711
  Serious: Yes (Hospitalization, Other)
  Sender: FDA-Public Use
  Company Number: PHEH2018US036492

PATIENT
  Sex: Male

DRUGS (1)
  1. ENTRESTO [Suspect]
     Active Substance: SACUBITRIL\VALSARTAN
     Indication: PRODUCT USED FOR UNKNOWN INDICATION
     Dosage: UNK
     Route: 048

REACTIONS (7)
  - Fluid retention [Unknown]
  - Cardiac failure congestive [Unknown]
  - Glomerular filtration rate decreased [Unknown]
  - Weight fluctuation [Unknown]
  - Blood pressure fluctuation [Unknown]
  - Blood calcium increased [Unknown]
  - Weight decreased [Unknown]
